FAERS Safety Report 8890066 (Version 1)
Quarter: 2012Q4

REPORT INFORMATION
  Report Type: Spontaneous
  Country: US (occurrence: None)
  Receive Date: 20121105
  Receipt Date: 20121105
  Transmission Date: 20130627
  Serious: Yes (Other)
  Sender: FDA-Public Use
  Company Number: None

PATIENT
  Age: 6 Year
  Sex: Male
  Weight: 27.22 kg

DRUGS (1)
  1. VYVANSE [Suspect]
     Indication: ADHD
     Dosage: 1 capsule Daily po
     Route: 048
     Dates: start: 20121020, end: 20121020

REACTIONS (5)
  - Heart rate increased [None]
  - Paranoia [None]
  - Vomiting [None]
  - Abnormal behaviour [None]
  - Hypophagia [None]
